FAERS Safety Report 17906964 (Version 1)
Quarter: 2020Q2

REPORT INFORMATION
  Report Type: Spontaneous
  Country: US (occurrence: US)
  Receive Date: 20200616
  Receipt Date: 20200616
  Transmission Date: 20200714
  Serious: No
  Sender: FDA-Public Use
  Company Number: None

PATIENT
  Age: 49 Year
  Sex: Female

DRUGS (1)
  1. OPSUMIT [Suspect]
     Active Substance: MACITENTAN
     Indication: PULMONARY ARTERIAL HYPERTENSION
     Route: 048
     Dates: start: 20200526, end: 20200610

REACTIONS (5)
  - Fatigue [None]
  - Diarrhoea [None]
  - Dyspnoea [None]
  - Abdominal distension [None]
  - Cardiac disorder [None]

NARRATIVE: CASE EVENT DATE: 20200610
